FAERS Safety Report 10404200 (Version 1)
Quarter: 2014Q1

REPORT INFORMATION
  Report Type: Spontaneous
  Country: US (occurrence: None)
  Receive Date: 20131226
  Receipt Date: 20131226
  Transmission Date: 20141002
  Serious: Yes (Other)
  Sender: FDA-Public Use
  Company Number: PHEH2012US001362

PATIENT
  Age: 10 Year
  Sex: Female
  Weight: 157 kg

DRUGS (2)
  1. AFINITOR (RAD) UNKNOWN [Suspect]
     Indication: BRAIN NEOPLASM BENIGN
     Route: 048
     Dates: start: 20120111, end: 20120210
  2. MIRLAX (MACROGOL) [Concomitant]

REACTIONS (15)
  - Neoplasm [None]
  - Cellulitis [None]
  - Staphylococcal infection [None]
  - Vitreous floaters [None]
  - Pharyngitis streptococcal [None]
  - Decreased appetite [None]
  - Pyrexia [None]
  - Headache [None]
  - Malignant neoplasm progression [None]
  - Blue toe syndrome [None]
  - Contusion [None]
  - Tenderness [None]
  - Skin warm [None]
  - Swelling [None]
  - Erythema [None]
